FAERS Safety Report 6816475-4 (Version None)
Quarter: 2010Q3

REPORT INFORMATION
  Report Type: 
  Country: None (occurrence: None)
  Receive Date: 20100705
  Receipt Date: 20100621
  Transmission Date: 20110219
  Serious: No
  Sender: FDA-Public Use
  Company Number: US-ELI_LILLY_AND_COMPANY-US201005007118

PATIENT
  Sex: Male
  Weight: 76.644 kg

DRUGS (15)
  1. EFFIENT [Suspect]
     Indication: STENT PLACEMENT
     Dosage: 10 MG, DAILY (1/D)
     Dates: start: 20100419
  2. LORTAB [Concomitant]
  3. METHADONE HCL [Concomitant]
  4. SOMA [Concomitant]
  5. SINGULAIR [Concomitant]
  6. ZOCOR [Concomitant]
  7. ALBUTEROL [Concomitant]
  8. ASPIRIN [Concomitant]
  9. BENADRYL [Concomitant]
  10. METOPROLOL TARTRATE [Concomitant]
  11. LISINOPRIL [Concomitant]
  12. ZANTAC [Concomitant]
  13. METHYLPREDNISOLONE [Concomitant]
  14. HYDROCHLOROTHIAZIDE [Concomitant]
  15. ACIDOPHILUS [Concomitant]

REACTIONS (5)
  - BACK PAIN [None]
  - CHRONIC OBSTRUCTIVE PULMONARY DISEASE [None]
  - HIATUS HERNIA [None]
  - HYPERTENSION [None]
  - MUSCULOSKELETAL CHEST PAIN [None]
